FAERS Safety Report 9711950 (Version 1)
Quarter: 2013Q4

REPORT INFORMATION
  Report Type: Spontaneous
  Country: JP (occurrence: None)
  Receive Date: 20131122
  Receipt Date: 20131122
  Transmission Date: 20140711
  Serious: Yes (Other)
  Sender: FDA-Public Use
  Company Number: AE-SPE-2013-029

PATIENT
  Age: 4 Year
  Sex: Female

DRUGS (2)
  1. MEIACT MS FINE GRANULES (CEFDITOREN PIVOXIL) [Suspect]
     Indication: PHARYNGITIS
     Route: 048
  2. WIDECILLIN [Suspect]
     Route: 048

REACTIONS (1)
  - Drug eruption [None]
